FAERS Safety Report 4924601-7 (Version None)
Quarter: 2006Q1

REPORT INFORMATION
  Report Type: 
  Country: None (occurrence: None)
  Receive Date: 20060222
  Receipt Date: 20060208
  Transmission Date: 20060701
  Serious: Yes (Other)
  Sender: FDA-Public Use
  Company Number: SUS1-2006-00149

PATIENT
  Age: 14 Year
  Sex: Male

DRUGS (1)
  1. ADDERALL XR 15 [Suspect]
     Dosage: 15 MG,

REACTIONS (4)
  - ANOREXIA [None]
  - FATIGUE [None]
  - INSOMNIA [None]
  - SYNCOPE [None]
